FAERS Safety Report 16522419 (Version 18)
Quarter: 2025Q4

REPORT INFORMATION
  Report Type: Spontaneous
  Country: US (occurrence: US)
  Receive Date: 20190703
  Receipt Date: 20251124
  Transmission Date: 20260117
  Serious: Yes (Hospitalization)
  Sender: PFIZER
  Company Number: US-PFIZER INC-2019280984

PATIENT
  Age: 61 Year
  Sex: Female
  Weight: 76.009 kg

DRUGS (4)
  1. IBRANCE [Suspect]
     Active Substance: PALBOCICLIB
     Dosage: ONCE A DAY, D1-21 W/7D BREAK
     Route: 048
     Dates: start: 20190325
  2. IBRANCE [Suspect]
     Active Substance: PALBOCICLIB
     Dosage: ONCE A DAY, D1-21 W/7D BREAK
     Route: 048
  3. EFFEXOR [Concomitant]
     Active Substance: VENLAFAXINE HYDROCHLORIDE
     Dosage: 150 MG, 1X/DAY
  4. LETROZOLE [Concomitant]
     Active Substance: LETROZOLE
     Indication: Chronic kidney disease
     Dosage: 2.5 MG, 1X/DAY

REACTIONS (4)
  - Cardiac disorder [Unknown]
  - Alopecia [Not Recovered/Not Resolved]
  - Sinusitis [Unknown]
  - Urinary tract infection [Recovered/Resolved]

NARRATIVE: CASE EVENT DATE: 20230101
